FAERS Safety Report 7743802-6 (Version None)
Quarter: 2011Q3

REPORT INFORMATION
  Report Type: 
  Country: None (occurrence: None)
  Receive Date: 20110912
  Receipt Date: 20110908
  Transmission Date: 20111222
  Serious: Yes (Life-Threatening, Hospitalization, Other)
  Sender: FDA-Public Use
  Company Number: CA-GLAXOSMITHKLINE-A0888721A

PATIENT
  Sex: Female

DRUGS (13)
  1. VITAMIN A [Concomitant]
  2. VITAMIN D [Concomitant]
  3. TYKERB [Suspect]
     Indication: BREAST CANCER
     Dosage: 1250MG PER DAY
     Route: 048
     Dates: start: 20101001, end: 20110908
  4. BLOOD PRESSURE MEDICATION [Concomitant]
     Indication: HYPERTENSION
  5. MICARDIS [Concomitant]
  6. PREVACID [Concomitant]
  7. XELODA [Suspect]
     Dosage: 2000MG TWICE PER DAY
     Route: 048
     Dates: start: 20101001, end: 20101015
  8. ACTONEL [Concomitant]
  9. VERAPAMIL [Concomitant]
  10. COLACE [Concomitant]
  11. SENOKOT [Concomitant]
  12. CELEBREX [Concomitant]
  13. HYDROMORPHONE HCL [Concomitant]

REACTIONS (6)
  - RENAL FAILURE ACUTE [None]
  - DIARRHOEA [None]
  - NEOPLASM MALIGNANT [None]
  - VOMITING [None]
  - NAUSEA [None]
  - DEHYDRATION [None]
